FAERS Safety Report 4547087-3 (Version None)
Quarter: 2005Q1

REPORT INFORMATION
  Report Type: 
  Country: None (occurrence: None)
  Receive Date: 20050105
  Receipt Date: 20041221
  Transmission Date: 20050727
  Serious: Yes (Hospitalization)
  Sender: FDA-Public Use
  Company Number: US014469

PATIENT
  Age: 59 Year
  Sex: Female
  Weight: 90.7194 kg

DRUGS (5)
  1. PROVIGIL [Suspect]
     Indication: IMMUNISATION
     Dosage: 200 MG QD ORAL
     Route: 048
     Dates: start: 20040401
  2. PAXIL [Concomitant]
  3. SYNTHROID [Concomitant]
  4. AMITRIPTYLINE [Concomitant]
  5. KLONOPIN [Concomitant]

REACTIONS (3)
  - CONFUSIONAL STATE [None]
  - HYPOAESTHESIA [None]
  - TRANSIENT ISCHAEMIC ATTACK [None]
